FAERS Safety Report 6287653-0 (Version None)
Quarter: 2009Q3

REPORT INFORMATION
  Report Type: 
  Country: None (occurrence: None)
  Receive Date: 20090727
  Receipt Date: 20090727
  Transmission Date: 20100115
  Serious: Yes (Hospitalization)
  Sender: FDA-Public Use
  Company Number: None

PATIENT
  Age: 14 Year
  Sex: Female

DRUGS (3)
  1. IPRATROPIUM BROMIDE [Suspect]
     Indication: DRUG USE FOR UNKNOWN INDICATION
     Dosage: (DF)
  2. SALBUTAMOL (SALBUTAMOL) [Suspect]
     Indication: DRUG USE FOR UNKNOWN INDICATION
     Dosage: (DF)
  3. PREDNISONE TAB [Concomitant]

REACTIONS (10)
  - BLOOD PH DECREASED [None]
  - CYSTIC FIBROSIS [None]
  - HEART RATE INCREASED [None]
  - PCO2 DECREASED [None]
  - PNEUMOTHORAX [None]
  - PO2 DECREASED [None]
  - RESPIRATORY DISTRESS [None]
  - RESPIRATORY RATE INCREASED [None]
  - SUBCUTANEOUS EMPHYSEMA [None]
  - WHEEZING [None]
